FAERS Safety Report 9217212 (Version 2)
Quarter: 2013Q2

REPORT INFORMATION
  Report Type: Spontaneous
  Country: JP (occurrence: JP)
  Receive Date: 20130408
  Receipt Date: 20130408
  Transmission Date: 20140414
  Serious: Yes (Hospitalization, Other)
  Sender: FDA-Public Use
  Company Number: PHHY2013JP021523

PATIENT
  Age: 56 Year
  Sex: Male

DRUGS (11)
  1. AMANTADINE [Suspect]
     Indication: PARKINSON^S DISEASE
     Dosage: 200 MG, DAILY
     Route: 048
  2. AMANTADINE [Suspect]
     Dosage: REDUCED DOSE
  3. ENTACAPONE [Suspect]
     Indication: PARKINSON^S DISEASE
     Dosage: 400 MG, DAILY
     Route: 048
  4. MENESIT [Suspect]
     Indication: PARKINSON^S DISEASE
     Dosage: 500 MG DAILY
     Route: 048
  5. PERMAX [Suspect]
     Indication: PARKINSON^S DISEASE
     Dosage: 1.5 MG DAILY
     Route: 048
  6. PERMAX [Suspect]
     Dosage: REDUCED DOSE
  7. CABASER [Suspect]
     Indication: PARKINSON^S DISEASE
     Dosage: 2 MG DAILY
     Route: 048
  8. CABASER [Suspect]
     Dosage: REDUCED DOSE
  9. REQUIP [Suspect]
     Indication: PARKINSON^S DISEASE
     Dosage: 12 MG DAILY
     Route: 048
  10. FP [Suspect]
     Indication: PARKINSON^S DISEASE
     Dosage: 7.5 MG DAILY
     Route: 048
  11. FP [Suspect]
     Dosage: REDUCED DOSE

REACTIONS (12)
  - Hypersexuality [Recovering/Resolving]
  - Psychomotor hyperactivity [Recovered/Resolved]
  - Dyskinesia [Recovered/Resolved]
  - Irritability [Recovered/Resolved]
  - Nightmare [Recovered/Resolved]
  - Restlessness [Recovered/Resolved]
  - Withdrawal syndrome [Recovered/Resolved]
  - Hallucination [None]
  - Hallucination, auditory [None]
  - Drug effect decreased [None]
  - Erythema [None]
  - Skin exfoliation [None]
